FAERS Safety Report 9618783 (Version 4)
Quarter: 2013Q4

REPORT INFORMATION
  Report Type: Spontaneous
  Country: GB (occurrence: GB)
  Receive Date: 20131014
  Receipt Date: 20131028
  Transmission Date: 20140711
  Serious: Yes (Hospitalization, Other)
  Sender: FDA-Public Use
  Company Number: PHFR2013GB005702

PATIENT
  Age: 25 Year
  Sex: Male

DRUGS (1)
  1. CLOZARIL [Suspect]
     Indication: SCHIZOPHRENIA
     Dosage: 100 MG, BD
     Route: 048
     Dates: start: 20130924, end: 20131010

REACTIONS (3)
  - Influenza like illness [Unknown]
  - Drug-induced liver injury [Recovering/Resolving]
  - Liver function test abnormal [Recovered/Resolved]
